FAERS Safety Report 7794056 (Version 3)
Quarter: 2013Q2

REPORT INFORMATION
  Report Type: Spontaneous
  Country: US (occurrence: US)
  Receive Date: 20110201
  Receipt Date: 20130402
  Transmission Date: 20140414
  Serious: Yes (Hospitalization)
  Sender: FDA-Public Use
  Company Number: US-BAYER-2011-004821

PATIENT
  Age: 37 Year
  Sex: Female
  Weight: 78.46 kg

DRUGS (13)
  1. OCELLA [Suspect]
     Indication: CONTRACEPTION
     Dosage: UNK
     Route: 048
     Dates: start: 200809, end: 200811
  2. YAZ [Suspect]
     Indication: CONTRACEPTION
     Dosage: UNK
     Dates: start: 200611, end: 200809
  3. NAPROXEN [Concomitant]
  4. LEVOTHYROXIN [Concomitant]
     Dosage: UNK
     Dates: start: 20080603
  5. ERGOCALCIFEROL [Concomitant]
     Dosage: UNK UNK, QD
     Route: 048
  6. PHENAZOPYRIDINE [Concomitant]
     Dosage: 200 MG, TID
     Route: 048
     Dates: start: 20101024, end: 20101026
  7. COD LIVER OIL [Concomitant]
     Dosage: UNK UNK, QD
     Route: 048
  8. MULTIVITAMIN [Concomitant]
     Dosage: UNK UNK, QD
     Route: 048
  9. OMEGA-3 FATTY ACIDS [Concomitant]
     Dosage: 1000 MG, QD
  10. FLUTICASONE [Concomitant]
     Dosage: UNK UNK, BID
     Route: 045
  11. OMEPRAZOLE [Concomitant]
     Dosage: 20 MG, QD
     Route: 048
  12. CLARITHROMYCIN [Concomitant]
  13. IBUPROFEN [Concomitant]
     Dosage: UNK
     Dates: start: 1995

REACTIONS (5)
  - Cholecystitis [Recovered/Resolved]
  - Pain [Recovered/Resolved]
  - Emotional distress [None]
  - Depression [None]
  - Nephrolithiasis [None]
